FAERS Safety Report 8377907-6 (Version None)
Quarter: 2012Q2

REPORT INFORMATION
  Report Type: 
  Country: None (occurrence: None)
  Receive Date: 20120522
  Receipt Date: 20120507
  Transmission Date: 20120825
  Serious: No
  Sender: FDA-Public Use
  Company Number: US-ENDO PHARMACEUTICALS INC.-OPIR20120069

PATIENT
  Sex: Female

DRUGS (2)
  1. OPANA [Suspect]
     Indication: BREAKTHROUGH PAIN
     Route: 048
     Dates: start: 20120101, end: 20120101
  2. OPANA ER [Concomitant]
     Indication: BACK PAIN
     Route: 048
     Dates: start: 20100101

REACTIONS (3)
  - WEIGHT BEARING DIFFICULTY [None]
  - ABASIA [None]
  - DRUG INEFFECTIVE [None]
